FAERS Safety Report 7358046-X (Version None)
Quarter: 2011Q1

REPORT INFORMATION
  Report Type: 
  Country: None (occurrence: None)
  Receive Date: 20110317
  Receipt Date: 20110310
  Transmission Date: 20110831
  Serious: Yes (Other)
  Sender: FDA-Public Use
  Company Number: US-TEVA-265986USA

PATIENT
  Sex: Female
  Weight: 80.358 kg

DRUGS (1)
  1. CLARAVIS [Suspect]
     Route: 048
     Dates: start: 20110110, end: 20110202

REACTIONS (1)
  - UNINTENDED PREGNANCY [None]
